FAERS Safety Report 8671480 (Version 2)
Quarter: 2012Q4

REPORT INFORMATION
  Report Type: 
  Country: ES (occurrence: ES)
  Receive Date: 20120718
  Receipt Date: 20120830
  Transmission Date: 20130627
  Serious: Yes (Hospitalization)
  Sender: FDA-Public Use
  Company Number: PHHY2012ES060019

PATIENT
  Age: 34 Year
  Sex: Female

DRUGS (6)
  1. TACROLIMUS [Suspect]
     Indication: IMMUNOSUPPRESSION
  2. MYCOPHENOLATE MOFETIL [Suspect]
     Indication: IMMUNOSUPPRESSION
  3. FLUCONAZOLE [Suspect]
     Indication: ANTIFUNGAL PROPHYLAXIS
     Dosage: 100 mg, daily
  4. VANCOMYCIN [Suspect]
     Indication: ANTIBIOTIC PROPHYLAXIS
  5. IMIPENEM [Suspect]
     Indication: ANTIBIOTIC PROPHYLAXIS
  6. CORTICOSTEROIDS [Suspect]
     Indication: IMMUNOSUPPRESSION

REACTIONS (9)
  - Pyrexia [Recovered/Resolved]
  - Abdominal pain [Recovered/Resolved]
  - General physical health deterioration [Recovered/Resolved]
  - Staphylococcus test positive [Recovered/Resolved]
  - Dyspepsia [Recovered/Resolved]
  - Infection in an immunocompromised host [None]
  - Septic shock [Recovered/Resolved]
  - Haemodynamic instability [Recovered/Resolved]
  - Systemic candida [Recovered/Resolved]
